FAERS Safety Report 4946325-2 (Version None)
Quarter: 2006Q1

REPORT INFORMATION
  Report Type: 
  Country: None (occurrence: None)
  Receive Date: 20060316
  Receipt Date: 20060316
  Transmission Date: 20060701
  Serious: Yes (Hospitalization)
  Sender: FDA-Public Use
  Company Number: None

PATIENT
  Age: 74 Year
  Sex: Male
  Weight: 78 kg

DRUGS (15)
  1. UNASYN [Suspect]
  2. METRONAZOLE [Concomitant]
  3. DIPHENHYDRAMINE [Concomitant]
  4. TRAMADOL HCL [Concomitant]
  5. YDROCORTISONE [Concomitant]
  6. CETAMINOPHEN [Concomitant]
  7. OPERAMIDE [Concomitant]
  8. ITROGLYCERIN [Concomitant]
  9. MEPRAZOLE [Concomitant]
  10. LOH/MGOH /SIMTH XTRA STRENGTH SUSP [Concomitant]
  11. XYBUTYNIN CHLORIDE [Concomitant]
  12. ETOPROLOL [Concomitant]
  13. ISINOPRIL [Concomitant]
  14. ETOCLOPRAMIDE [Concomitant]
  15. AMOTIDINE [Concomitant]

REACTIONS (1)
  - CLOSTRIDIUM COLITIS [None]
